FAERS Safety Report 9690029 (Version 2)
Quarter: 2013Q4

REPORT INFORMATION
  Report Type: Report from Study
  Country: DE (occurrence: DE)
  Receive Date: 20131115
  Receipt Date: 20131115
  Transmission Date: 20140711
  Serious: Yes (Death, Hospitalization)
  Sender: FDA-Public Use
  Company Number: DE-ROCHE-1265294

PATIENT
  Sex: Male

DRUGS (17)
  1. TOCILIZUMAB [Suspect]
     Indication: RHEUMATOID ARTHRITIS
     Route: 065
     Dates: start: 20110720, end: 20120110
  2. METHOTREXATE [Suspect]
     Indication: RHEUMATOID ARTHRITIS
     Route: 065
     Dates: start: 2012, end: 2012
  3. CIPROBAY (GERMANY) [Concomitant]
     Route: 065
  4. L-THYROXIN [Concomitant]
     Route: 065
  5. ACETYLSALICYLIC ACID [Concomitant]
     Route: 065
  6. PANTOZOL (GERMANY) [Concomitant]
     Route: 065
  7. LORZAAR [Concomitant]
     Route: 065
  8. SIMVASTATIN [Concomitant]
     Route: 065
  9. PREDNISOLON [Concomitant]
     Route: 065
  10. DICLOFENAC [Concomitant]
     Route: 065
  11. VALORON (GERMANY) [Concomitant]
  12. VOLTAREN [Concomitant]
  13. CODIOVAN [Concomitant]
     Route: 065
  14. DIGITOXIN [Concomitant]
     Route: 065
  15. EUPHYLONG [Concomitant]
     Route: 065
  16. GEMZAR [Concomitant]
  17. CISPLATIN [Concomitant]

REACTIONS (5)
  - Non-small cell lung cancer [Fatal]
  - Septic shock [Fatal]
  - Multi-organ failure [Fatal]
  - Bronchial disorder [Not Recovered/Not Resolved]
  - Pneumonia [Not Recovered/Not Resolved]
